FAERS Safety Report 9445978 (Version 1)
Quarter: 2013Q3

REPORT INFORMATION
  Report Type: Report from Study
  Country: US (occurrence: US)
  Receive Date: 20130807
  Receipt Date: 20130807
  Transmission Date: 20140515
  Serious: Yes (Hospitalization)
  Sender: FDA-Public Use
  Company Number: US-ACTELION-A-NJ2013-86660

PATIENT
  Age: 71 Year
  Sex: Female

DRUGS (8)
  1. TRACLEER [Suspect]
     Indication: PULMONARY ARTERIAL HYPERTENSION
     Dosage: 125 MG, BID
     Route: 048
  2. WARFARIN [Concomitant]
     Dosage: 5 MG, UNK
  3. ATENOLOL [Concomitant]
     Dosage: 25 MG, UNK
  4. OXYCONTIN [Concomitant]
     Dosage: 30 MG, UNK
  5. HYDROCHLOROTHIAZIDE [Concomitant]
     Dosage: 25 MG, UNK
  6. MULTIVITAMIN [Concomitant]
  7. FOLIC ACID [Concomitant]
     Dosage: 600 MG, UNK
  8. VITAMIN D3 [Concomitant]
     Dosage: 2000 IU, UNK

REACTIONS (2)
  - Hip arthroplasty [Recovered/Resolved]
  - Arthralgia [Recovered/Resolved]
